FAERS Safety Report 8258879-1 (Version None)
Quarter: 2012Q2

REPORT INFORMATION
  Report Type: 
  Country: None (occurrence: None)
  Receive Date: 20120404
  Receipt Date: 20120326
  Transmission Date: 20120825
  Serious: Yes (Hospitalization)
  Sender: FDA-Public Use
  Company Number: FR-ASTRAZENECA-2012SE21406

PATIENT
  Age: 60 Year
  Sex: Male

DRUGS (7)
  1. PANTOPRAZOLE [Suspect]
     Route: 048
  2. ERGOCALCIFEROL [Suspect]
     Route: 048
  3. AOTAL [Suspect]
     Route: 048
  4. LOSARTAN POTASSIUM AND HYDROCHLOROTHIAZIDE [Suspect]
     Dosage: 100 MG / 12.5 MG DAILY
     Route: 048
  5. CRESTOR [Suspect]
     Route: 048
  6. KAELORID LP [Suspect]
     Route: 048
  7. ASPIRIN [Suspect]
     Route: 048

REACTIONS (2)
  - PANCREATITIS ACUTE [None]
  - OEDEMATOUS PANCREATITIS [None]
